FAERS Safety Report 8915329 (Version 4)
Quarter: 2013Q3

REPORT INFORMATION
  Report Type: Report from Study
  Country: JP (occurrence: JP)
  Receive Date: 20121119
  Receipt Date: 20130828
  Transmission Date: 20140515
  Serious: Yes (Hospitalization)
  Sender: FDA-Public Use
  Company Number: JP-VERTEX PHARMACEUTICAL INC.-2012-024694

PATIENT
  Age: 50 Year
  Sex: Male

DRUGS (10)
  1. VX-950 (TELAPREVIR) [Suspect]
     Indication: CHRONIC HEPATITIS C
     Dosage: 2250 MG, QD
     Route: 048
     Dates: start: 20120925, end: 20120929
  2. VX-950 (TELAPREVIR) [Suspect]
     Dosage: 1500 MG, QD
     Route: 048
     Dates: start: 20120930, end: 20121112
  3. REBETOL [Suspect]
     Indication: CHRONIC HEPATITIS C
     Dosage: 800 MG, QD
     Route: 048
     Dates: start: 20120925, end: 20121008
  4. REBETOL [Suspect]
     Dosage: 600 MG, QD
     Route: 048
     Dates: start: 20121009, end: 20121105
  5. REBETOL [Suspect]
     Dosage: 200 MG, QD
     Route: 048
     Dates: start: 20121106, end: 20121112
  6. PEGINTRON [Suspect]
     Indication: CHRONIC HEPATITIS C
     Dosage: 1.5 ?G/KG, QW
     Route: 058
     Dates: start: 20120925, end: 20121106
  7. TALION [Concomitant]
     Dosage: 20 MG, QD
     Route: 048
     Dates: end: 20121126
  8. HYALEIN [Concomitant]
     Dosage: UNK, QD
     Route: 031
     Dates: start: 20121113, end: 20121118
  9. MAGNESIUM OXIDE [Concomitant]
     Dosage: 6 G, QD
     Route: 048
     Dates: start: 20121118, end: 20130521
  10. GASTER D [Concomitant]
     Dosage: 40 MG, UNK
     Route: 048
     Dates: start: 20121212

REACTIONS (1)
  - Drug eruption [Recovered/Resolved]
